FAERS Safety Report 20674432 (Version 1)
Quarter: 2022Q2

REPORT INFORMATION
  Report Type: Spontaneous
  Country: US (occurrence: US)
  Receive Date: 20220405
  Receipt Date: 20220405
  Transmission Date: 20220721
  Serious: Yes (Death, Other)
  Sender: FDA-Public Use
  Company Number: US-SPECGX-T202200380

PATIENT
  Sex: Male

DRUGS (6)
  1. MORPHINE [Suspect]
     Active Substance: MORPHINE
     Indication: Insomnia
     Dosage: UNK (.25)
     Route: 065
     Dates: start: 2022, end: 2022
  2. LORAZEPAM [Suspect]
     Active Substance: LORAZEPAM
     Indication: Insomnia
     Dosage: 1 DOSAGE FORM
     Route: 065
     Dates: start: 2022, end: 2022
  3. LORAZEPAM [Suspect]
     Active Substance: LORAZEPAM
     Dosage: 2 DOSAGE FORM
     Route: 065
     Dates: start: 20220211
  4. QUETIAPINE [Suspect]
     Active Substance: QUETIAPINE
     Indication: Dementia
     Dosage: UNK
     Route: 065
     Dates: start: 2022, end: 2022
  5. CIPROFLOXACIN [Suspect]
     Active Substance: CIPROFLOXACIN
     Indication: Urosepsis
     Dosage: UNK
     Route: 065
     Dates: start: 2022, end: 2022
  6. METHOTREXATE [Concomitant]
     Active Substance: METHOTREXATE
     Indication: Rheumatoid arthritis
     Dosage: UNK
     Route: 065

REACTIONS (8)
  - Death [Fatal]
  - Urosepsis [Unknown]
  - Hypopnoea [Unknown]
  - Hypotension [Unknown]
  - Tachypnoea [Unknown]
  - Dysphagia [Unknown]
  - Somnolence [Unknown]
  - Drug ineffective for unapproved indication [Unknown]

NARRATIVE: CASE EVENT DATE: 20220101
